FAERS Safety Report 5383965-3 (Version None)
Quarter: 2007Q3

REPORT INFORMATION
  Report Type: 
  Country: None (occurrence: None)
  Receive Date: 20070711
  Receipt Date: 20070704
  Transmission Date: 20080115
  Serious: Yes (Hospitalization, Other)
  Sender: FDA-Public Use
  Company Number: CHWYE750405DEC06

PATIENT
  Age: 37 Year
  Sex: Female
  Weight: 60 kg

DRUGS (2)
  1. EFFEXOR [Suspect]
     Indication: DEPRESSION
     Route: 048
  2. EFFEXOR [Suspect]
     Indication: BIPOLAR II DISORDER

REACTIONS (3)
  - ARRESTED LABOUR [None]
  - DELAYED DELIVERY [None]
  - DRUG EXPOSURE DURING PREGNANCY [None]
